FAERS Safety Report 16827329 (Version 8)
Quarter: 2020Q4

REPORT INFORMATION
  Report Type: Report from Study
  Country: None (occurrence: US)
  Receive Date: 20190919
  Receipt Date: 20201010
  Transmission Date: 20210113
  Serious: Yes (Hospitalization, Other)
  Sender: FDA-Public Use
  Company Number: US-ABBVIE-19K-163-2925965-00

PATIENT
  Age: 58 Year
  Sex: Male

DRUGS (1)
  1. HUMIRA [Suspect]
     Active Substance: ADALIMUMAB
     Indication: RHEUMATOID ARTHRITIS
     Route: 058

REACTIONS (15)
  - Weight increased [Not Recovered/Not Resolved]
  - Procedural complication [Unknown]
  - Tooth loss [Unknown]
  - Polyp [Not Recovered/Not Resolved]
  - Joint lock [Unknown]
  - Wound [Unknown]
  - Dyspepsia [Unknown]
  - Pneumonia [Not Recovered/Not Resolved]
  - Bladder catheterisation [Not Recovered/Not Resolved]
  - Increased tendency to bruise [Unknown]
  - Coma [Unknown]
  - Gastric disorder [Not Recovered/Not Resolved]
  - Diabetes mellitus [Not Recovered/Not Resolved]
  - Rheumatoid arthritis [Not Recovered/Not Resolved]
  - Dyspnoea [Unknown]

NARRATIVE: CASE EVENT DATE: 201910
